FAERS Safety Report 10292560 (Version 1)
Quarter: 2014Q3

REPORT INFORMATION
  Report Type: Spontaneous
  Country: US (occurrence: US)
  Receive Date: 20140710
  Receipt Date: 20140710
  Transmission Date: 20150326
  Serious: No
  Sender: FDA-Public Use
  Company Number: US-TARO-2013P1019150

PATIENT
  Age: 51 Year
  Sex: Female
  Weight: 68.04 kg

DRUGS (3)
  1. LOVASTATIN. [Concomitant]
     Active Substance: LOVASTATIN
  2. DESOXIMETASONE OINTMENT USP 0.25% [Suspect]
     Active Substance: DESOXIMETASONE
     Dosage: X1
     Route: 061
     Dates: start: 20130705, end: 20130705
  3. LEVOTHYROXINE [Concomitant]
     Active Substance: LEVOTHYROXINE

REACTIONS (6)
  - Application site swelling [Unknown]
  - Application site erythema [Unknown]
  - Wound secretion [Recovered/Resolved]
  - Urticaria [Recovered/Resolved]
  - Pruritus [Unknown]
  - Accidental exposure to product [Recovered/Resolved]

NARRATIVE: CASE EVENT DATE: 20130705
